FAERS Safety Report 6820344-3 (Version None)
Quarter: 2010Q3

REPORT INFORMATION
  Report Type: 
  Country: None (occurrence: None)
  Receive Date: 20100707
  Receipt Date: 20100623
  Transmission Date: 20110219
  Serious: Yes (Hospitalization)
  Sender: FDA-Public Use
  Company Number: ES-TEVA-239445ISR

PATIENT
  Sex: Male

DRUGS (12)
  1. PREDNISOLONE [Suspect]
     Indication: PROSTATE CANCER METASTATIC
     Route: 048
     Dates: start: 20100220
  2. ABIRATERONE ACETATE OR PLACEBO (BLINDED THERAPY) [Suspect]
     Indication: PROSTATE CANCER METASTATIC
     Route: 048
     Dates: start: 20100220
  3. TRIPTORELIN [Concomitant]
     Dates: start: 20100220
  4. DIAZEPAM [Concomitant]
     Indication: ANTIDEPRESSANT THERAPY
     Route: 048
     Dates: start: 19950201
  5. ACETAMINOPHEN [Concomitant]
     Indication: CANCER PAIN
     Route: 048
     Dates: start: 20091201
  6. FLUVASTATIN [Concomitant]
     Indication: DYSLIPIDAEMIA
     Route: 048
     Dates: start: 20040201
  7. EZETIMIBE [Concomitant]
     Indication: DYSLIPIDAEMIA
     Route: 048
     Dates: start: 20040201
  8. ISOSORBIDE [Concomitant]
     Indication: MYOCARDIAL ISCHAEMIA
     Route: 048
     Dates: start: 19980201
  9. AMLODIPINE [Concomitant]
     Indication: HYPERTENSION
     Route: 048
     Dates: start: 20050201
  10. ALMAGATE [Concomitant]
     Indication: GASTROINTESTINAL DISORDER THERAPY
     Route: 048
     Dates: start: 19950201
  11. OTHER CARDIOVASCULAR AGENTS [Concomitant]
     Indication: HYPERTENSION
     Route: 048
     Dates: start: 19980201
  12. OTHER CARDIOVASCULAR AGENTS [Concomitant]
     Indication: MYOCARDIAL ISCHAEMIA

REACTIONS (1)
  - URINARY TRACT INFECTION [None]
